FAERS Safety Report 17040344 (Version 1)
Quarter: 2019Q4

REPORT INFORMATION
  Report Type: Spontaneous
  Country: US (occurrence: US)
  Receive Date: 20191117
  Receipt Date: 20191117
  Transmission Date: 20200122
  Serious: No
  Sender: FDA-Public Use
  Company Number: US-TORRENT-00007565

PATIENT
  Sex: Male
  Weight: 79 kg

DRUGS (5)
  1. HYDROCHLOROTHIAZIDE. [Concomitant]
     Active Substance: HYDROCHLOROTHIAZIDE
     Indication: BLOOD PRESSURE MEASUREMENT
     Dosage: 25 MG ONCE A DAY
  2. ATORVASTATIN [Concomitant]
     Active Substance: ATORVASTATIN
     Indication: BLOOD PRESSURE MEASUREMENT
     Dosage: 10MG ONCE A DAY
  3. PROZAC [Concomitant]
     Active Substance: FLUOXETINE HYDROCHLORIDE
     Indication: OBSESSIVE-COMPULSIVE DISORDER
     Dosage: 40MG ONCE A DAY
  4. OLMESARTAN [Concomitant]
     Active Substance: OLMESARTAN
     Indication: CARDIAC DISORDER
     Dosage: 40 MG ONCE A DAY
  5. LOSARTAN. [Suspect]
     Active Substance: LOSARTAN
     Indication: HYPERTENSION
     Dosage: ONCE A DAY AND INCREASED TO TWO TIMES A DAY
     Route: 048
     Dates: start: 20181016, end: 201812

REACTIONS (11)
  - Swelling [Recovered/Resolved]
  - Peripheral swelling [Recovered/Resolved]
  - Vision blurred [Recovered/Resolved]
  - Malaise [Unknown]
  - Overweight [Unknown]
  - Joint swelling [Recovered/Resolved]
  - Rash [Unknown]
  - Hypokinesia [Unknown]
  - Dizziness [Recovered/Resolved]
  - Fall [Unknown]
  - Gait disturbance [Unknown]

NARRATIVE: CASE EVENT DATE: 20181016
